FAERS Safety Report 23926861 (Version 1)
Quarter: 2024Q2

REPORT INFORMATION
  Report Type: Spontaneous
  Country: US (occurrence: US)
  Receive Date: 20240531
  Receipt Date: 20240531
  Transmission Date: 20240716
  Serious: No
  Sender: FDA-Public Use
  Company Number: US-RADIUS HEALTH, INC.-2023US006056

PATIENT
  Age: 60 Year
  Sex: Female

DRUGS (2)
  1. TYMLOS [Suspect]
     Active Substance: ABALOPARATIDE
     Indication: Senile osteoporosis
     Dosage: 80 MICROGRAM, QD
     Route: 058
     Dates: start: 20231102, end: 20240101
  2. TYMLOS [Suspect]
     Active Substance: ABALOPARATIDE
     Indication: Osteoporosis

REACTIONS (7)
  - Contusion [Recovering/Resolving]
  - Retching [Recovered/Resolved]
  - Feeling abnormal [Recovered/Resolved]
  - Nausea [Recovered/Resolved]
  - Dizziness [Recovering/Resolving]
  - Palpitations [Unknown]
  - Headache [Recovered/Resolved]

NARRATIVE: CASE EVENT DATE: 20231101
